FAERS Safety Report 17949308 (Version 1)
Quarter: 2020Q2

REPORT INFORMATION
  Report Type: Spontaneous
  Country: US (occurrence: US)
  Receive Date: 20200626
  Receipt Date: 20200626
  Transmission Date: 20200714
  Serious: Yes (Other)
  Sender: FDA-Public Use
  Company Number: US-NOVOPROD-735459

PATIENT
  Age: 33 Year
  Sex: Female

DRUGS (1)
  1. SAXENDA [Suspect]
     Active Substance: LIRAGLUTIDE
     Indication: PRODUCT USED FOR UNKNOWN INDICATION
     Dosage: UNK
     Route: 058

REACTIONS (4)
  - Weight increased [Not Recovered/Not Resolved]
  - Arthropathy [Unknown]
  - Polycystic ovaries [Not Recovered/Not Resolved]
  - Arthralgia [Not Recovered/Not Resolved]
